FAERS Safety Report 20101959 (Version 2)
Quarter: 2021Q4

REPORT INFORMATION
  Report Type: Spontaneous
  Country: CA (occurrence: CA)
  Receive Date: 20211123
  Receipt Date: 20211221
  Transmission Date: 20220303
  Serious: Yes (Life-Threatening)
  Sender: FDA-Public Use
  Company Number: CA-AMERICAN REGENT INC-2021003077

PATIENT
  Age: 41 Year
  Sex: Female

DRUGS (1)
  1. VENOFER [Suspect]
     Active Substance: IRON SUCROSE
     Indication: Anaemia
     Dosage: 300 MILLIGRAM/ 250 CC OF NS
     Route: 042
     Dates: start: 20210624, end: 20210624

REACTIONS (6)
  - Heart rate irregular [Unknown]
  - Gingival swelling [Unknown]
  - Mouth swelling [Recovering/Resolving]
  - Infusion related reaction [Unknown]
  - Abdominal pain [Unknown]
  - Vomiting [Unknown]

NARRATIVE: CASE EVENT DATE: 20210624
